FAERS Safety Report 24041904 (Version 1)
Quarter: 2024Q3

REPORT INFORMATION
  Report Type: Spontaneous
  Country: CN (occurrence: CN)
  Receive Date: 20240702
  Receipt Date: 20240702
  Transmission Date: 20241016
  Serious: Yes (Hospitalization)
  Sender: BRACCO
  Company Number: CN-BRACCO-2024CN03816

PATIENT
  Age: 80 Year
  Sex: Female

DRUGS (3)
  1. GADOBENATE DIMEGLUMINE [Suspect]
     Active Substance: GADOBENATE DIMEGLUMINE
     Indication: Magnetic resonance imaging
     Dosage: 15 ML, SINGLE
     Route: 042
     Dates: start: 20240624, end: 20240624
  2. SODIUM CHLORIDE [Concomitant]
     Active Substance: SODIUM CHLORIDE
     Dosage: 15 ML
     Route: 042
     Dates: start: 20240624, end: 20240624
  3. SODIUM CHLORIDE [Concomitant]
     Active Substance: SODIUM CHLORIDE
     Dosage: 500 ML
     Route: 041
     Dates: start: 20240624, end: 20240624

REACTIONS (1)
  - Stupor [Recovering/Resolving]

NARRATIVE: CASE EVENT DATE: 20240624
